FAERS Safety Report 7930448-X (Version None)
Quarter: 2011Q4

REPORT INFORMATION
  Report Type: 
  Country: None (occurrence: None)
  Receive Date: 20111108
  Receipt Date: 20101028
  Transmission Date: 20120403
  Serious: Yes (Other)
  Sender: FDA-Public Use
  Company Number: PHHY2010US71572

PATIENT
  Age: 63 Year
  Sex: Female

DRUGS (4)
  1. ZOMETA [Suspect]
     Dates: start: 20080301
  2. NAVELBINE [Concomitant]
  3. ANTIBIOTICS (NO INGREDIENTS/SUBSTANCES) [Concomitant]
  4. HERCEPTIN [Concomitant]

REACTIONS (4)
  - PAIN IN JAW [None]
  - SWELLING FACE [None]
  - OSTEOMYELITIS [None]
  - OSTEONECROSIS OF JAW [None]
